FAERS Safety Report 5088638-2 (Version None)
Quarter: 2006Q3

REPORT INFORMATION
  Report Type: 
  Country: None (occurrence: None)
  Receive Date: 20060822
  Receipt Date: 20060815
  Transmission Date: 20061208
  Serious: Yes (Other)
  Sender: FDA-Public Use
  Company Number: HQWYE332109SEP05

PATIENT
  Age: 51 Year
  Sex: Female

DRUGS (1)
  1. PREMPRO [Suspect]
     Indication: HORMONE REPLACEMENT THERAPY
     Dosage: ORAL
     Route: 048
     Dates: start: 20000301, end: 20011101

REACTIONS (5)
  - BREAST CANCER METASTATIC [None]
  - BREAST FIBROSIS [None]
  - GALLBLADDER POLYP [None]
  - HEPATITIS B POSITIVE [None]
  - HEPATITIS B SURFACE ANTIGEN POSITIVE [None]
